FAERS Safety Report 4867839-X (Version None)
Quarter: 2005Q4

REPORT INFORMATION
  Report Type: 
  Country: None (occurrence: None)
  Receive Date: 20051228
  Receipt Date: 20051017
  Transmission Date: 20060501
  Serious: Yes (Death, Other)
  Sender: FDA-Public Use
  Company Number: US-MERCK-0510USA07772

PATIENT
  Sex: Female
  Weight: 55 kg

DRUGS (9)
  1. VIOXX [Suspect]
     Indication: SYSTEMIC LUPUS ERYTHEMATOSUS
     Route: 048
     Dates: start: 20000501, end: 20020101
  2. HYDROXYCHLOROQUINE SULFATE [Concomitant]
     Indication: PAIN
     Route: 065
     Dates: start: 20000301, end: 20020801
  3. PREDNISONE [Concomitant]
     Route: 065
  4. AZATHIOPRINE [Concomitant]
     Route: 065
  5. ALTACE [Concomitant]
     Indication: HYPERTENSION
     Route: 065
     Dates: start: 20020401, end: 20020601
  6. NAPROXEN [Concomitant]
     Indication: PAIN
     Route: 065
     Dates: start: 20000501, end: 20000601
  7. TYLENOL [Concomitant]
     Indication: PAIN
     Route: 065
     Dates: start: 20020401, end: 20020501
  8. MEDROXYPROGESTERONE ACETATE [Concomitant]
     Route: 065
     Dates: start: 19970901, end: 20021001
  9. PREMARIN [Concomitant]
     Route: 065
     Dates: start: 19970901, end: 20021001

REACTIONS (5)
  - CARDIAC ARREST [None]
  - CHEST PAIN [None]
  - DYSPNOEA [None]
  - MYOCARDIAL INFARCTION [None]
  - SYSTEMIC LUPUS ERYTHEMATOSUS [None]
